FAERS Safety Report 6523335-5 (Version None)
Quarter: 2009Q4

REPORT INFORMATION
  Report Type: 
  Country: None (occurrence: None)
  Receive Date: 20091231
  Receipt Date: 20091223
  Transmission Date: 20100525
  Serious: Yes (Hospitalization, Other)
  Sender: FDA-Public Use
  Company Number: US-JNJFOC-20091009093

PATIENT
  Sex: Female

DRUGS (5)
  1. LEVAQUIN [Suspect]
     Indication: URINARY TRACT INFECTION
     Route: 048
  2. PREDNISONE [Suspect]
     Indication: ARTHRITIS
  3. VOLTAREN [Concomitant]
     Indication: ARTHRITIS
     Route: 048
  4. CENESTIN [Concomitant]
  5. PROGESTERONE [Concomitant]

REACTIONS (3)
  - CYST [None]
  - TENDON DISORDER [None]
  - TENDON RUPTURE [None]
